FAERS Safety Report 21096163 (Version 3)
Quarter: 2022Q4

REPORT INFORMATION
  Report Type: Report from Study
  Country: FR (occurrence: FR)
  Receive Date: 20220718
  Receipt Date: 20221212
  Transmission Date: 20230112
  Serious: Yes (Death, Life-Threatening, Hospitalization, Other)
  Sender: FDA-Public Use
  Company Number: FR-BRISTOL-MYERS SQUIBB COMPANY-2022-070521

PATIENT
  Age: 81 Year

DRUGS (2)
  1. NIVOLUMAB [Suspect]
     Active Substance: NIVOLUMAB
     Indication: Non-small cell lung cancer
  2. NIVOLUMAB [Suspect]
     Active Substance: NIVOLUMAB

REACTIONS (12)
  - Pain [Recovered/Resolved]
  - Anuria [Recovered/Resolved]
  - Inflammation [Unknown]
  - Oxygen saturation decreased [Unknown]
  - Hypercalcaemia [Fatal]
  - Back pain [Recovered/Resolved]
  - Renal impairment [Unknown]
  - Pulmonary congestion [Unknown]
  - Metastases to bone [Unknown]
  - Infection [Unknown]
  - Tachycardia [Unknown]
  - Non-small cell lung cancer [Fatal]

NARRATIVE: CASE EVENT DATE: 20220704
